FAERS Safety Report 7064519-X (Version None)
Quarter: 2010Q4

REPORT INFORMATION
  Report Type: 
  Country: None (occurrence: None)
  Receive Date: 20101027
  Receipt Date: 20101026
  Transmission Date: 20110411
  Serious: Yes (Death, Hospitalization)
  Sender: FDA-Public Use
  Company Number: US-JNJFOC-20060902707

PATIENT
  Age: 52 Year
  Sex: Female

DRUGS (8)
  1. IBUPROFEN [Suspect]
     Indication: SUICIDE ATTEMPT
     Route: 048
  2. LOXAPINE [Suspect]
     Indication: SUICIDE ATTEMPT
     Route: 048
  3. AMANTADINE [Suspect]
     Indication: SUICIDE ATTEMPT
     Route: 048
  4. FLURAZEPAM [Suspect]
     Indication: SUICIDE ATTEMPT
  5. SERTRALINE HYDROCHLORIDE [Suspect]
     Indication: SUICIDE ATTEMPT
     Route: 048
  6. SYMMETREL [Concomitant]
     Indication: PRODUCT USED FOR UNKNOWN INDICATION
  7. DALMANE [Concomitant]
     Indication: PRODUCT USED FOR UNKNOWN INDICATION
  8. ZOLOFT [Concomitant]
     Indication: PRODUCT USED FOR UNKNOWN INDICATION

REACTIONS (6)
  - BLOOD CREATINE PHOSPHOKINASE INCREASED [None]
  - COMPLETED SUICIDE [None]
  - HEPATIC FUNCTION ABNORMAL [None]
  - HYPERAMMONAEMIA [None]
  - MULTIPLE DRUG OVERDOSE INTENTIONAL [None]
  - STATUS EPILEPTICUS [None]
